FAERS Safety Report 4999300-6 (Version None)
Quarter: 2006Q2

REPORT INFORMATION
  Report Type: 
  Country: None (occurrence: None)
  Receive Date: 20060509
  Receipt Date: 20060509
  Transmission Date: 20061013
  Serious: Yes (Life-Threatening)
  Sender: FDA-Public Use
  Company Number: None

PATIENT
  Age: 39 Year
  Sex: Female
  Weight: 62.5964 kg

DRUGS (2)
  1. CLARITIN REDITABS [Suspect]
     Indication: SEASONAL ALLERGY
     Dosage: 1 TAB    24 HRS    PO
     Route: 048
     Dates: start: 20060408, end: 20060418
  2. FOOD LION ALLERGY RELIEF      10 MG          FOOD LION [Suspect]
     Indication: SEASONAL ALLERGY
     Dosage: 1 TAB    24 HRS   PO
     Route: 048
     Dates: start: 20060419, end: 20060507

REACTIONS (2)
  - RENAL DISORDER [None]
  - RENAL PAIN [None]
